FAERS Safety Report 9711127 (Version 1)
Quarter: 2013Q4

REPORT INFORMATION
  Report Type: Spontaneous
  Country: US (occurrence: US)
  Receive Date: 20131126
  Receipt Date: 20131126
  Transmission Date: 20140711
  Serious: No
  Sender: FDA-Public Use
  Company Number: US-BRISTOL-MYERS SQUIBB COMPANY-19151927

PATIENT
  Sex: Female

DRUGS (3)
  1. BYETTA [Suspect]
     Indication: TYPE 2 DIABETES MELLITUS
     Dosage: SINCE 2010 OR 2011
     Route: 058
  2. STARLIX [Suspect]
     Indication: TYPE 2 DIABETES MELLITUS
     Dosage: STOPPED A MNTH AGO
     Dates: end: 2013
  3. INSULIN [Suspect]
     Indication: TYPE 2 DIABETES MELLITUS
     Dosage: LOW DOSE OF INSULIN AT BEDTIME
     Dates: start: 2012

REACTIONS (8)
  - Nausea [Not Recovered/Not Resolved]
  - Decreased appetite [Not Recovered/Not Resolved]
  - Retching [Not Recovered/Not Resolved]
  - Malaise [Not Recovered/Not Resolved]
  - Hyperhidrosis [Not Recovered/Not Resolved]
  - Weight decreased [Unknown]
  - Dizziness [Not Recovered/Not Resolved]
  - Blood glucose increased [Unknown]
